FAERS Safety Report 21407559 (Version 3)
Quarter: 2022Q4

REPORT INFORMATION
  Report Type: Report from Study
  Country: US (occurrence: None)
  Receive Date: 20221004
  Receipt Date: 20221121
  Transmission Date: 20230113
  Serious: Yes (Life-Threatening, Hospitalization)
  Sender: FDA-Public Use
  Company Number: US-ROCHE-3183598

PATIENT
  Age: 78 Year
  Sex: Male
  Weight: 93.9 kg

DRUGS (5)
  1. POLATUZUMAB VEDOTIN [Suspect]
     Active Substance: POLATUZUMAB VEDOTIN
     Indication: Mantle cell lymphoma
     Route: 042
     Dates: start: 20220608, end: 20220720
  2. RITUXIMAB [Suspect]
     Active Substance: RITUXIMAB
     Indication: Mantle cell lymphoma
     Route: 041
     Dates: start: 20220608
  3. RITUXIMAB [Suspect]
     Active Substance: RITUXIMAB
     Route: 042
     Dates: start: 20220629, end: 20220720
  4. VENETOCLAX [Suspect]
     Active Substance: VENETOCLAX
     Indication: Mantle cell lymphoma
     Dosage: RAMP UP (20-50-100-200-400MG EACH DOSE FOR 7 DAYS) BEGINNING 07/JUN/2022 DOSE AT 400MG QD
     Route: 048
     Dates: start: 20220608, end: 20220808
  5. HYALURONIDASE [Suspect]
     Active Substance: HYALURONIDASE
     Indication: Mantle cell lymphoma
     Route: 042
     Dates: start: 20220629, end: 20220720

REACTIONS (8)
  - Dyspnoea [Unknown]
  - Acute respiratory failure [Unknown]
  - Septic shock [Unknown]
  - Pneumonia [Unknown]
  - Respiratory failure [Unknown]
  - Pseudomonal bacteraemia [Unknown]
  - Pancytopenia [Unknown]
  - Pneumonia [Unknown]

NARRATIVE: CASE EVENT DATE: 20220808
